FAERS Safety Report 19687760 (Version 2)
Quarter: 2022Q1

REPORT INFORMATION
  Report Type: Spontaneous
  Country: US (occurrence: US)
  Receive Date: 20210812
  Receipt Date: 20220110
  Transmission Date: 20220424
  Serious: No
  Sender: FDA-Public Use
  Company Number: US-SA-SAC20210809000944

PATIENT
  Age: 51 Year
  Sex: Female

DRUGS (1)
  1. DUPIXENT [Suspect]
     Active Substance: DUPILUMAB
     Dosage: 300MG, FREQUENCY: OTHER
     Route: 058
     Dates: start: 202103

REACTIONS (5)
  - Ovarian cyst [Unknown]
  - Condition aggravated [Unknown]
  - Pain [Unknown]
  - Back pain [Unknown]
  - Nasal polyps [Unknown]

NARRATIVE: CASE EVENT DATE: 20210714
